FAERS Safety Report 19741101 (Version 1)
Quarter: 2021Q3

REPORT INFORMATION
  Report Type: Spontaneous
  Country: US (occurrence: US)
  Receive Date: 20210824
  Receipt Date: 20210824
  Transmission Date: 20211014
  Serious: No
  Sender: FDA-Public Use
  Company Number: US-ORGANON-O2108USA001164

PATIENT
  Age: 67 Year

DRUGS (1)
  1. FOSAMAX [Suspect]
     Active Substance: ALENDRONATE SODIUM
     Dosage: UNK, FOR OVER 25 YEARS

REACTIONS (4)
  - Bone disorder [Unknown]
  - Insomnia [Unknown]
  - Back pain [Unknown]
  - Pain in extremity [Unknown]
